FAERS Safety Report 24630998 (Version 1)
Quarter: 2024Q4

REPORT INFORMATION
  Report Type: Report from Study
  Country: US (occurrence: US)
  Receive Date: 20241118
  Receipt Date: 20241118
  Transmission Date: 20250115
  Serious: Yes (Hospitalization, Other)
  Sender: UCB
  Company Number: US-UCBSA-2024058941

PATIENT
  Age: 20 Year
  Sex: Female

DRUGS (2)
  1. BRIVARACETAM [Suspect]
     Active Substance: BRIVARACETAM
     Indication: Seizure
     Dosage: 100 MILLIGRAM, 2X/DAY (BID)
  2. NAYZILAM [Suspect]
     Active Substance: MIDAZOLAM
     Indication: Product used for unknown indication

REACTIONS (3)
  - Cerebral disorder [Unknown]
  - Brain operation [Recovered/Resolved]
  - Jaw disorder [Unknown]

NARRATIVE: CASE EVENT DATE: 20241028
